FAERS Safety Report 15946312 (Version 2)
Quarter: 2019Q2

REPORT INFORMATION
  Report Type: Spontaneous
  Country: AR (occurrence: AR)
  Receive Date: 20190211
  Receipt Date: 20190409
  Transmission Date: 20190711
  Serious: Yes (Other)
  Sender: FDA-Public Use
  Company Number: AR-PFIZER INC-2018503571

PATIENT
  Age: 73 Year
  Sex: Male

DRUGS (1)
  1. SUTENT [Suspect]
     Active Substance: SUNITINIB MALATE
     Indication: METASTATIC RENAL CELL CARCINOMA
     Dosage: UNK, DAILY (2 WEEKS AND THEN 1 OFF)
     Dates: start: 20170329, end: 201901

REACTIONS (1)
  - Thyroid gland injury [Recovering/Resolving]

NARRATIVE: CASE EVENT DATE: 20181115
